FAERS Safety Report 9405167 (Version 2)
Quarter: 2013Q3

REPORT INFORMATION
  Report Type: Spontaneous
  Country: VE (occurrence: VE)
  Receive Date: 20130717
  Receipt Date: 20130724
  Transmission Date: 20140515
  Serious: Yes (Death, Other)
  Sender: FDA-Public Use
  Company Number: VE-PFIZER INC-2013207417

PATIENT
  Age: 67 Year
  Sex: Male

DRUGS (2)
  1. ZOLOFT [Suspect]
     Indication: DEPRESSION
     Dosage: 25 MG, 1X/DAY
     Route: 048
     Dates: start: 2011
  2. DILATREND [Concomitant]
     Indication: HYPERTENSION
     Dosage: 6.5 MG, 1X/DAY
     Route: 048
     Dates: start: 2010

REACTIONS (2)
  - Immunosuppression [Fatal]
  - Metastasis [Not Recovered/Not Resolved]
